FAERS Safety Report 7725618-X (Version None)
Quarter: 2011Q3

REPORT INFORMATION
  Report Type: 
  Country: None (occurrence: None)
  Receive Date: 20110831
  Receipt Date: 20110816
  Transmission Date: 20111222
  Serious: Yes (Other)
  Sender: FDA-Public Use
  Company Number: US-006093

PATIENT
  Sex: Female

DRUGS (2)
  1. CONTRACEPTIVES [Concomitant]
  2. TRANEXAMIC ACID [Suspect]

REACTIONS (1)
  - THROMBOSIS [None]
